FAERS Safety Report 14298919 (Version 1)
Quarter: 2017Q4

REPORT INFORMATION
  Report Type: Spontaneous
  Country: US (occurrence: US)
  Receive Date: 20171216
  Receipt Date: 20171216
  Transmission Date: 20180321
  Serious: Yes (Hospitalization)
  Sender: FDA-Public Use
  Company Number: None

PATIENT
  Age: 46 Year
  Sex: Female
  Weight: 112.5 kg

DRUGS (6)
  1. HUMIRA [Suspect]
     Active Substance: ADALIMUMAB
     Indication: CHORIORETINITIS
     Dosage: ?          QUANTITY:2 INJECTION(S);OTHER FREQUENCY:2 INITIALLY, 1BI-W;?
     Route: 058
     Dates: start: 20171212, end: 20171215
  2. SINGULAIR [Concomitant]
     Active Substance: MONTELUKAST SODIUM
  3. RAZATRIPTAN [Concomitant]
  4. VERAPAMIL [Concomitant]
     Active Substance: VERAPAMIL HYDROCHLORIDE
  5. OMEPRAXOL [Concomitant]
  6. HUMIRA [Suspect]
     Active Substance: ADALIMUMAB
     Indication: IRIDOCYCLITIS
     Dosage: ?          QUANTITY:2 INJECTION(S);OTHER FREQUENCY:2 INITIALLY, 1BI-W;?
     Route: 058
     Dates: start: 20171212, end: 20171215

REACTIONS (16)
  - Dyspnoea [None]
  - Dizziness [None]
  - Ocular hyperaemia [None]
  - Flatulence [None]
  - Migraine [None]
  - Asthenia [None]
  - Paraesthesia [None]
  - Neck pain [None]
  - Swelling face [None]
  - Eye swelling [None]
  - Dysuria [None]
  - Drug interaction [None]
  - Diarrhoea [None]
  - Back pain [None]
  - Nausea [None]
  - Glassy eyes [None]

NARRATIVE: CASE EVENT DATE: 20171215
